FAERS Safety Report 7281413-X (Version None)
Quarter: 2011Q1

REPORT INFORMATION
  Report Type: 
  Country: None (occurrence: None)
  Receive Date: 20110208
  Receipt Date: 20110128
  Transmission Date: 20110831
  Serious: Yes (Life-Threatening, Hospitalization)
  Sender: FDA-Public Use
  Company Number: DE-ELI_LILLY_AND_COMPANY-DE201101007346

PATIENT
  Sex: Female

DRUGS (4)
  1. ALIMTA [Suspect]
     Indication: BRONCHIAL CARCINOMA
     Dosage: 500 MG/M2, UNK
     Route: 042
     Dates: start: 20101221, end: 20101221
  2. VIT B12 [Concomitant]
  3. FOLSAN [Concomitant]
  4. DEXAMETHASONE [Concomitant]
     Dosage: 4 MG, 2/D
     Dates: start: 20101220, end: 20101221

REACTIONS (6)
  - HYPERSENSITIVITY [None]
  - PAPULE [None]
  - DYSPNOEA [None]
  - LIP SWELLING [None]
  - ERYTHEMA [None]
  - PHARYNGEAL OEDEMA [None]
